FAERS Safety Report 4340830-8 (Version None)
Quarter: 2004Q2

REPORT INFORMATION
  Report Type: 
  Country: None (occurrence: None)
  Receive Date: 20040419
  Receipt Date: 20031103
  Transmission Date: 20050107
  Serious: No
  Sender: FDA-Public Use
  Company Number: US-GLAXOSMITHKLINE-A0432622A

PATIENT
  Age: 66 Year
  Sex: Female

DRUGS (22)
  1. ESKALITH [Suspect]
     Indication: ILL-DEFINED DISORDER
     Dosage: 450MG PER DAY
     Route: 048
     Dates: start: 20031031
  2. LITHOBID [Concomitant]
  3. HALOPERIDOL [Concomitant]
  4. ZYPREXA [Concomitant]
  5. RISPERDAL [Concomitant]
  6. LAMICTAL [Concomitant]
  7. TRAZODONE HCL [Concomitant]
  8. FLUVASTATIN [Concomitant]
  9. ASPIRIN [Concomitant]
  10. ATENOLOL [Concomitant]
  11. CLONAZEPAM [Concomitant]
  12. IBUPROFEN [Concomitant]
  13. NITROGLYCERIN [Concomitant]
  14. DILTIAZEM [Concomitant]
  15. LOPERAMIDE HCL [Concomitant]
  16. COMBIVENT [Concomitant]
  17. ATROVENT [Concomitant]
  18. TYLENOL (CAPLET) [Concomitant]
  19. MULTI-VITAMIN [Concomitant]
  20. VITAMIN E [Concomitant]
  21. CALCIUM CARBONATE WITH VITAMIN D [Concomitant]
  22. TUBERCULIN SKIN TEST [Concomitant]

REACTIONS (1)
  - PYREXIA [None]
